FAERS Safety Report 5347068-6 (Version None)
Quarter: 2007Q2

REPORT INFORMATION
  Report Type: 
  Country: None (occurrence: None)
  Receive Date: 20070604
  Receipt Date: 20070525
  Transmission Date: 20071010
  Serious: Yes (Other)
  Sender: FDA-Public Use
  Company Number: JPI-P-001364

PATIENT
  Age: 43 Year
  Sex: Female
  Weight: 79.3795 kg

DRUGS (15)
  1. XYREM (OXYBATE SODIUM) (500 MILLIGRAM/MILLITERS) [Suspect]
     Indication: CATAPLEXY
     Dosage: 7.5 (3.75 GM, 2 IN 1 D), ORAL
     Route: 048
     Dates: start: 20070426
  2. LAMICTAL [Suspect]
     Indication: CONVULSION
     Dosage: SEE IMAGE
     Dates: end: 20070515
  3. LAMICTAL [Suspect]
     Indication: CONVULSION
     Dosage: SEE IMAGE
     Dates: start: 20070516, end: 20070520
  4. LAMICTAL [Suspect]
     Indication: CONVULSION
     Dosage: SEE IMAGE
     Dates: start: 20070521
  5. LAMICTAL [Suspect]
     Indication: CONVULSION
     Dosage: SEE IMAGE
     Dates: start: 20070521
  6. TYSABRI [Concomitant]
  7. ABILIFY [Concomitant]
  8. CYMBALTA [Concomitant]
  9. PROVIGIL [Concomitant]
  10. TOPAMAX [Concomitant]
  11. DURAGESIC (FENTANYL) (POULTICE OR PATCH) [Concomitant]
  12. GABAPENTIN [Concomitant]
  13. ADDERALL XR (ORETROL /01345401/) [Concomitant]
  14. BACLOFEN [Concomitant]
  15. MS CONTIN [Concomitant]

REACTIONS (8)
  - BLOOD PRESSURE INCREASED [None]
  - CONCOMITANT DISEASE AGGRAVATED [None]
  - EPILEPSY [None]
  - GRAND MAL CONVULSION [None]
  - HEART RATE INCREASED [None]
  - MEMORY IMPAIRMENT [None]
  - NASAL DISORDER [None]
  - PETIT MAL EPILEPSY [None]
